FAERS Safety Report 23338608 (Version 1)
Quarter: 2023Q4

REPORT INFORMATION
  Report Type: Spontaneous
  Country: BE (occurrence: BE)
  Receive Date: 20231226
  Receipt Date: 20231226
  Transmission Date: 20240110
  Serious: Yes (Other)
  Sender: FDA-Public Use
  Company Number: BE-JNJFOC-20231230480

PATIENT

DRUGS (1)
  1. NICORETTE [Suspect]
     Active Substance: NICOTINE
     Indication: Smoking cessation therapy
     Dosage: UNK (ONE PACKAGE GOES THROUGH EACH WEEK)
     Route: 065

REACTIONS (4)
  - Tremor [Unknown]
  - Ill-defined disorder [Unknown]
  - Intentional product use issue [Not Recovered/Not Resolved]
  - Nicotine dependence [Not Recovered/Not Resolved]
